FAERS Safety Report 6054643-2 (Version None)
Quarter: 2009Q1

REPORT INFORMATION
  Report Type: 
  Country: None (occurrence: None)
  Receive Date: 20090128
  Receipt Date: 20090116
  Transmission Date: 20090719
  Serious: Yes (Death)
  Sender: FDA-Public Use
  Company Number: US-RANBAXY-2009RR-21032

PATIENT
  Age: 55 Year
  Sex: Female

DRUGS (4)
  1. VENLAFAXINE HCL [Suspect]
     Route: 048
  2. ZOLPIDEM TARTRATE [Suspect]
     Route: 048
  3. ETHANOL [Suspect]
     Route: 048
  4. ACETAMINOPHEN [Suspect]
     Route: 048

REACTIONS (2)
  - CARDIAC ARREST [None]
  - COMPLETED SUICIDE [None]
